FAERS Safety Report 19074429 (Version 2)
Quarter: 2021Q2

REPORT INFORMATION
  Report Type: Spontaneous
  Country: US (occurrence: US)
  Receive Date: 20210330
  Receipt Date: 20210416
  Transmission Date: 20210717
  Serious: No
  Sender: FDA-Public Use
  Company Number: US-TEVA-2021-US-1895978

PATIENT
  Sex: Female

DRUGS (2)
  1. FLUOXETINE TEVA [Suspect]
     Active Substance: FLUOXETINE HYDROCHLORIDE
     Indication: OBSESSIVE-COMPULSIVE DISORDER
     Route: 065
     Dates: start: 202103
  2. FLUOXETINE TEVA [Suspect]
     Active Substance: FLUOXETINE HYDROCHLORIDE
     Route: 065
     Dates: start: 20210306

REACTIONS (5)
  - Product substitution issue [Unknown]
  - Abnormal faeces [Unknown]
  - Diarrhoea [Unknown]
  - Flatulence [Unknown]
  - Pain [Unknown]

NARRATIVE: CASE EVENT DATE: 20210306
